FAERS Safety Report 6038464-2 (Version None)
Quarter: 2009Q1

REPORT INFORMATION
  Report Type: 
  Country: None (occurrence: None)
  Receive Date: 20090115
  Receipt Date: 20080529
  Transmission Date: 20090719
  Serious: No
  Sender: FDA-Public Use
  Company Number: US-KINGPHARMUSA00001-K200800631

PATIENT
  Sex: Male
  Weight: 63.492 kg

DRUGS (1)
  1. EPIPEN [Suspect]
     Dosage: UNK, SINGLE
     Route: 030
     Dates: start: 20080528, end: 20080528

REACTIONS (6)
  - ACCIDENTAL EXPOSURE [None]
  - EXPIRED DRUG ADMINISTERED [None]
  - INJECTION SITE COLDNESS [None]
  - INJECTION SITE HAEMATOMA [None]
  - TENDERNESS [None]
  - TREMOR [None]
